FAERS Safety Report 9969861 (Version 2)
Quarter: 2014Q2

REPORT INFORMATION
  Report Type: Spontaneous
  Country: CA (occurrence: CA)
  Receive Date: 20140306
  Receipt Date: 20140527
  Transmission Date: 20141212
  Serious: Yes (Life-Threatening)
  Sender: FDA-Public Use
  Company Number: CA-SA-2014SA024079

PATIENT
  Age: 75 Year
  Sex: Female

DRUGS (5)
  1. LANTUS SOLOSTAR [Suspect]
     Indication: DIABETES MELLITUS
     Dosage: DOSE:35 UNIT(S)
     Route: 058
     Dates: start: 20140213
  2. ANTIHYPERTENSIVES [Concomitant]
     Indication: HYPERTENSION
  3. AMLODIPINE [Concomitant]
     Dates: end: 20140301
  4. RAMIPRIL [Concomitant]
     Dosage: RAMIPRIL 5MG
  5. SOLOSTAR [Concomitant]
     Dates: start: 20140213

REACTIONS (2)
  - Convulsion [Recovered/Resolved]
  - Injection site pain [Not Recovered/Not Resolved]
